FAERS Safety Report 8599426-4 (Version None)
Quarter: 2012Q3

REPORT INFORMATION
  Report Type: 
  Country: None (occurrence: None)
  Receive Date: 20120816
  Receipt Date: 20120806
  Transmission Date: 20120928
  Serious: No
  Sender: FDA-Public Use
  Company Number: US-ASTRAZENECA-2012SE55697

PATIENT
  Age: 75 Year
  Sex: Male

DRUGS (3)
  1. OMEPRAZOLE [Suspect]
     Route: 048
  2. CRESTOR [Concomitant]
  3. NEXIUM [Concomitant]

REACTIONS (1)
  - MYASTHENIA GRAVIS [None]
